FAERS Safety Report 20140125 (Version 2)
Quarter: 2021Q4

REPORT INFORMATION
  Report Type: Spontaneous
  Country: BR (occurrence: BR)
  Receive Date: 20211202
  Receipt Date: 20211207
  Transmission Date: 20220303
  Serious: Yes (Hospitalization, Other)
  Sender: FDA-Public Use
  Company Number: BR-009507513-2111BRA010161

PATIENT
  Sex: Male

DRUGS (1)
  1. PEMBROLIZUMAB [Suspect]
     Active Substance: PEMBROLIZUMAB
     Indication: Lung neoplasm malignant
     Dosage: UNK

REACTIONS (5)
  - Colitis [Recovered/Resolved]
  - Pneumonitis [Recovered/Resolved]
  - Dermatitis [Recovered/Resolved]
  - Dermatitis [Not Recovered/Not Resolved]
  - Drug ineffective [Unknown]
